FAERS Safety Report 7163779 (Version 5)
Quarter: 2014Q4

REPORT INFORMATION
  Report Type: Report from Study
  Country: JP (occurrence: JP)
  Receive Date: 20091030
  Receipt Date: 20141215
  Transmission Date: 20150529
  Serious: Yes (Hospitalization, Other)
  Sender: FDA-Public Use
  Company Number: PHHY2009JP36293

PATIENT
  Age: 75 Year
  Sex: Male

DRUGS (8)
  1. AMN107 [Suspect]
     Active Substance: NILOTINIB
     Dosage: 200 MG, QD
     Route: 048
     Dates: start: 20090624, end: 20090721
  2. AMN107 [Suspect]
     Active Substance: NILOTINIB
     Dosage: 400 MG, QD
     Route: 048
     Dates: start: 20090722, end: 20090818
  3. AMN107 [Suspect]
     Active Substance: NILOTINIB
     Indication: CHRONIC MYELOID LEUKAEMIA
     Dosage: 400 MG, QD
     Route: 048
     Dates: start: 20090610, end: 20090614
  4. PREDONINE [Concomitant]
     Active Substance: PREDNISOLONE\PREDNISOLONE ACETATE\PREDNISOLONE SODIUM SUCCINATE
     Indication: PROPHYLAXIS
     Dosage: 20 MG, QD
     Route: 048
     Dates: start: 20090624
  5. PREDONINE [Concomitant]
     Active Substance: PREDNISOLONE\PREDNISOLONE ACETATE\PREDNISOLONE SODIUM SUCCINATE
     Dosage: 30 MG, UNK
     Route: 048
  6. PREDONINE [Concomitant]
     Active Substance: PREDNISOLONE\PREDNISOLONE ACETATE\PREDNISOLONE SODIUM SUCCINATE
     Dosage: 25 MG, UNK
     Route: 048
  7. AMN107 [Suspect]
     Active Substance: NILOTINIB
     Dosage: 200 MG, QD
     Route: 048
     Dates: start: 20090819, end: 20090826
  8. GLIVEC [Concomitant]
     Active Substance: IMATINIB MESYLATE
     Indication: PRODUCT USED FOR UNKNOWN INDICATION
     Dosage: UNK
     Route: 065
     Dates: start: 20060517, end: 20061024

REACTIONS (15)
  - Pneumocystis jirovecii pneumonia [Recovering/Resolving]
  - Haemoglobin decreased [Unknown]
  - Blood alkaline phosphatase increased [Unknown]
  - White blood cell count abnormal [Unknown]
  - Blood lactate dehydrogenase increased [Unknown]
  - Platelet count decreased [Recovered/Resolved]
  - Interstitial lung disease [Recovering/Resolving]
  - Cough [Recovered/Resolved]
  - Hyperbilirubinaemia [Recovering/Resolving]
  - Electrocardiogram QT prolonged [Unknown]
  - Lipase increased [Recovered/Resolved]
  - C-reactive protein increased [Unknown]
  - Infection [Recovering/Resolving]
  - Pyrexia [Recovered/Resolved]
  - Rash [Recovered/Resolved]

NARRATIVE: CASE EVENT DATE: 20090614
